FAERS Safety Report 6702098-4 (Version None)
Quarter: 2010Q2

REPORT INFORMATION
  Report Type: 
  Country: None (occurrence: None)
  Receive Date: 20100429
  Receipt Date: 20100420
  Transmission Date: 20101027
  Serious: Yes (Other)
  Sender: FDA-Public Use
  Company Number: CA-ABBOTT-10P-028-0636882-00

PATIENT
  Sex: Female
  Weight: 72.64 kg

DRUGS (7)
  1. HUMIRA [Suspect]
     Indication: ANKYLOSING SPONDYLITIS
     Route: 058
     Dates: start: 20090729
  2. SULFASALAZINE [Concomitant]
     Indication: DRUG USE FOR UNKNOWN INDICATION
     Dosage: 500 MG 2 TABS BID
     Route: 048
  3. TIAPROFENIC [Concomitant]
     Indication: ARTHRITIS
     Route: 048
     Dates: start: 20000101
  4. PANTOPRAZOLE [Concomitant]
     Indication: GASTRIC DISORDER
     Route: 048
  5. AMYTRIPTILLIN [Concomitant]
     Indication: SLEEP DISORDER THERAPY
     Dosage: 10 MG Q HS
     Route: 048
  6. ESTRACE [Concomitant]
     Indication: MENOPAUSE
     Route: 048
  7. CASCARA SAGRADA [Concomitant]
     Indication: CONSTIPATION PROPHYLAXIS
     Route: 048

REACTIONS (3)
  - CLAVICLE FRACTURE [None]
  - FALL [None]
  - MOBILITY DECREASED [None]
